FAERS Safety Report 20002617 (Version 3)
Quarter: 2021Q4

REPORT INFORMATION
  Report Type: Report from Study
  Country: MX (occurrence: MX)
  Receive Date: 20211027
  Receipt Date: 20211110
  Transmission Date: 20220303
  Serious: Yes (Other)
  Sender: FDA-Public Use
  Company Number: MX-NOVARTISPH-NVSC2021MX244248

PATIENT
  Age: 67 Year
  Sex: Female
  Weight: 71 kg

DRUGS (2)
  1. VILDAGLIPTIN [Suspect]
     Active Substance: VILDAGLIPTIN
     Indication: Diabetes mellitus
     Dosage: 1 DF, BID
     Route: 048
     Dates: start: 20201114, end: 20210218
  2. METFORMIN HYDROCHLORIDE\VILDAGLIPTIN [Suspect]
     Active Substance: METFORMIN HYDROCHLORIDE\VILDAGLIPTIN
     Indication: Diabetes mellitus
     Dosage: 1 DF, TID
     Route: 048
     Dates: start: 20210225

REACTIONS (4)
  - Haemorrhage [Recovering/Resolving]
  - Urinary tract infection [Unknown]
  - COVID-19 [Recovering/Resolving]
  - Inappropriate schedule of product administration [Unknown]

NARRATIVE: CASE EVENT DATE: 20210218
